FAERS Safety Report 26194069 (Version 2)
Quarter: 2025Q4

REPORT INFORMATION
  Report Type: Spontaneous
  Country: US (occurrence: US)
  Receive Date: 20251224
  Receipt Date: 20251226
  Transmission Date: 20260118
  Serious: No
  Sender: BAYER HEALTHCARE PHARMACEUTICALS INC.
  Company Number: US-BAYER-2025A168323

PATIENT
  Sex: Female

DRUGS (1)
  1. ESTRADIOL [Suspect]
     Active Substance: ESTRADIOL
     Dosage: 0.025 MG, OW
     Route: 062

REACTIONS (3)
  - Device adhesion issue [None]
  - Wrong technique in device usage process [None]
  - Application site irritation [None]

NARRATIVE: CASE EVENT DATE: 20251205
